FAERS Safety Report 10679350 (Version 4)
Quarter: 2015Q1

REPORT INFORMATION
  Report Type: Report from Study
  Country: KR (occurrence: KR)
  Receive Date: 20141229
  Receipt Date: 20150223
  Transmission Date: 20150720
  Serious: Yes (Hospitalization)
  Sender: FDA-Public Use
  Company Number: KR-SA-2014SA176427

PATIENT
  Age: 54 Year
  Sex: Male
  Weight: 54 kg

DRUGS (43)
  1. OXALIPLATIN. [Suspect]
     Active Substance: OXALIPLATIN
     Indication: OESOPHAGEAL ADENOCARCINOMA
     Dosage: INFUSION, 140MG, STARTED AT 11:23, I1 IN 14 DAYS
     Route: 042
     Dates: start: 20141120
  2. INVESTIGATIONAL DRUG [Suspect]
     Active Substance: INVESTIGATIONAL PRODUCT
     Indication: OESOPHAGEAL ADENOCARCINOMA
     Route: 048
     Dates: start: 20141120, end: 20141206
  3. FLUOROURACIL. [Suspect]
     Active Substance: FLUOROURACIL
     Indication: OESOPHAGEAL ADENOCARCINOMA
     Dosage: (660MG, STARTED AT 13:23), (3960 MG, STARTED AT 13:28)
     Route: 040
     Dates: start: 20141120, end: 20141120
  4. ONSERAN [Concomitant]
     Indication: PREMEDICATION
     Route: 042
     Dates: start: 20141120
  5. ONSERAN [Concomitant]
     Indication: PREMEDICATION
     Route: 048
     Dates: start: 20141121
  6. ARESTAL [Concomitant]
     Active Substance: LOPERAMIDE OXIDE
     Indication: DIARRHOEA
     Route: 048
     Dates: start: 20141125, end: 20141126
  7. MACPERAN [Concomitant]
     Indication: VOMITING
     Route: 042
     Dates: start: 20141212, end: 20141219
  8. AMOXICILLIN/CLAVULANATE POTASSIUM [Concomitant]
     Route: 048
     Dates: start: 20141218, end: 20141230
  9. AMARYL [Concomitant]
     Active Substance: GLIMEPIRIDE
     Indication: DIABETES MELLITUS
     Route: 048
     Dates: start: 20141204
  10. METFORMIN [Concomitant]
     Active Substance: METFORMIN HYDROCHLORIDE
     Indication: DIABETES MELLITUS
     Route: 048
     Dates: start: 20141204
  11. ASPIRIN. [Concomitant]
     Active Substance: ASPIRIN
     Indication: HYPERTENSION
     Route: 048
  12. ONSERAN [Concomitant]
     Indication: NAUSEA
     Route: 042
     Dates: start: 20141120
  13. RED BLOOD CELLS [Concomitant]
     Active Substance: HUMAN RED BLOOD CELL
     Indication: ANAEMIA
     Dosage: DAILY DOSE: 1 UNIT NOT REPORTED
     Route: 042
     Dates: start: 20141214, end: 20141214
  14. SMECTA [Concomitant]
     Active Substance: MONTMORILLONITE
     Indication: DIARRHOEA
     Dosage: DAILY DOSE: 1 OTHER
     Route: 048
     Dates: start: 20141121, end: 20141121
  15. MUCOPECT [Concomitant]
     Indication: PROPHYLAXIS
     Route: 048
     Dates: end: 20141230
  16. ONSERAN [Concomitant]
     Indication: NAUSEA
     Route: 048
     Dates: start: 20141121
  17. DEXAMETHASONE. [Concomitant]
     Active Substance: DEXAMETHASONE
     Indication: NAUSEA
     Route: 042
     Dates: start: 20141121
  18. DEXAMETHASONE. [Concomitant]
     Active Substance: DEXAMETHASONE
     Indication: PREMEDICATION
     Route: 042
     Dates: start: 20141121
  19. SODIUM BICARBONATE. [Concomitant]
     Active Substance: SODIUM BICARBONATE
     Indication: STOMATITIS
     Dates: start: 20141119
  20. MAGNESIUM OXIDE. [Concomitant]
     Active Substance: MAGNESIUM OXIDE
     Indication: CONSTIPATION
     Route: 048
  21. PENIRAMIN [Concomitant]
     Indication: VOMITING
     Route: 042
     Dates: start: 20141212, end: 20141219
  22. INVESTIGATIONAL DRUG [Suspect]
     Active Substance: INVESTIGATIONAL PRODUCT
     Indication: OESOPHAGEAL ADENOCARCINOMA
     Route: 048
     Dates: start: 20141120, end: 20141206
  23. FLUOROURACIL. [Suspect]
     Active Substance: FLUOROURACIL
     Indication: OESOPHAGEAL ADENOCARCINOMA
     Dosage: (660MG, STARTED AT 13:23), (3960 MG, STARTED AT 13:28)
     Route: 042
     Dates: start: 20141120
  24. ARESTAL [Concomitant]
     Active Substance: LOPERAMIDE OXIDE
     Indication: DIARRHOEA
     Route: 048
     Dates: start: 20141209, end: 20141211
  25. MEGESTROL [Concomitant]
     Active Substance: MEGESTROL
     Indication: DECREASED APPETITE
     Dosage: DOSE: 2 OTHER
     Route: 048
     Dates: start: 20141125, end: 20141202
  26. TERRAMYCIN [Concomitant]
     Active Substance: OXYTETRACYCLINE\OXYTETRACYCLINE HYDROCHLORIDE
     Indication: EPISTAXIS
     Route: 062
     Dates: start: 20141211, end: 20141230
  27. INVESTIGATIONAL DRUG [Suspect]
     Active Substance: INVESTIGATIONAL PRODUCT
     Indication: OESOPHAGEAL ADENOCARCINOMA
     Route: 048
     Dates: start: 20141120, end: 20141206
  28. INVESTIGATIONAL DRUG [Suspect]
     Active Substance: INVESTIGATIONAL PRODUCT
     Indication: OESOPHAGEAL ADENOCARCINOMA
     Route: 048
     Dates: start: 20141120, end: 20141206
  29. FOLINIC ACID [Suspect]
     Active Substance: LEUCOVORIN
     Indication: OESOPHAGEAL ADENOCARCINOMA
     Dosage: FREQUENCY: 1 IN 14 DAYS.
     Route: 042
     Dates: start: 20141120
  30. NEXIUM [Concomitant]
     Active Substance: ESOMEPRAZOLE MAGNESIUM
     Indication: ABDOMINAL PAIN UPPER
     Route: 048
     Dates: end: 20141214
  31. MACPERAN [Concomitant]
     Indication: NAUSEA
     Route: 042
     Dates: start: 20141212, end: 20141219
  32. SEVIKAR [Concomitant]
     Active Substance: AMLODIPINE BESYLATE\OLMESARTAN MEDOXOMIL
     Indication: HYPERTENSION
     Route: 048
  33. OXYCODONE [Concomitant]
     Active Substance: OXYCODONE
     Indication: PAIN
     Route: 048
  34. PHOSTEN [Concomitant]
     Indication: HYPOPHOSPHATAEMIA
     Route: 042
     Dates: start: 20141209, end: 20141216
  35. PHOSTEN [Concomitant]
     Indication: HYPOPHOSPHATAEMIA
     Route: 042
     Dates: start: 20141217, end: 20141217
  36. ACTIFED [Concomitant]
     Active Substance: PSEUDOEPHEDRINE HYDROCHLORIDE\TRIPROLIDINE HYDROCHLORIDE
     Indication: RHINORRHOEA
     Route: 048
     Dates: start: 20141209, end: 20141225
  37. PENIRAMIN [Concomitant]
     Indication: NAUSEA
     Route: 042
     Dates: start: 20141212, end: 20141219
  38. INVESTIGATIONAL DRUG [Suspect]
     Active Substance: INVESTIGATIONAL PRODUCT
     Indication: OESOPHAGEAL ADENOCARCINOMA
     Route: 048
     Dates: start: 20141120, end: 20141206
  39. INVESTIGATIONAL DRUG [Suspect]
     Active Substance: INVESTIGATIONAL PRODUCT
     Indication: OESOPHAGEAL ADENOCARCINOMA
     Route: 048
     Dates: start: 20141120, end: 20141206
  40. ULCERMIN [Concomitant]
     Active Substance: SUCRALFATE
     Indication: ABDOMINAL PAIN UPPER
     Dosage: DAILY DOSE: 1 UNIT NOT REPORTED
     Route: 048
     Dates: end: 20141211
  41. HUMULIN N [Concomitant]
     Active Substance: INSULIN HUMAN
     Indication: DIABETES MELLITUS
     Dosage: FORM: SUSPENSION
     Route: 058
     Dates: start: 20141216, end: 20141217
  42. GASTER [Concomitant]
     Active Substance: FAMOTIDINE
     Indication: ABDOMINAL PAIN UPPER
     Route: 048
     Dates: end: 20141214
  43. HUMULIN N [Concomitant]
     Active Substance: INSULIN HUMAN
     Indication: DIABETES MELLITUS
     Route: 058
     Dates: start: 20141218

REACTIONS (1)
  - Hyperosmolar hyperglycaemic state [Recovered/Resolved]

NARRATIVE: CASE EVENT DATE: 20141207
